FAERS Safety Report 12802908 (Version 1)
Quarter: 2016Q4

REPORT INFORMATION
  Report Type: Spontaneous
  Country: US (occurrence: US)
  Receive Date: 20161001
  Receipt Date: 20161001
  Transmission Date: 20170207
  Serious: Yes (Other)
  Sender: FDA-Public Use
  Company Number: None

PATIENT
  Age: 69 Year
  Sex: Male
  Weight: 73.8 kg

DRUGS (1)
  1. PICATO [Suspect]
     Active Substance: INGENOL MEBUTATE
     Indication: SKIN CANCER
     Dosage: ?          OTHER FREQUENCY:DAILY 3 DAYS;?
     Route: 061
     Dates: start: 20141030, end: 20141101

REACTIONS (9)
  - Periorbital oedema [None]
  - Purulence [None]
  - Macular degeneration [None]
  - Ocular hyperaemia [None]
  - Oedema [None]
  - Eye injury [None]
  - Eyelid ptosis [None]
  - Visual field defect [None]
  - Visual acuity reduced [None]

NARRATIVE: CASE EVENT DATE: 20141102
